FAERS Safety Report 16172351 (Version 1)
Quarter: 2019Q2

REPORT INFORMATION
  Report Type: Spontaneous
  Country: SE (occurrence: SE)
  Receive Date: 20190409
  Receipt Date: 20190409
  Transmission Date: 20190711
  Serious: Yes (Other)
  Sender: FDA-Public Use
  Company Number: SE-ROCHE-2299011

PATIENT
  Age: 34 Year
  Sex: Female

DRUGS (1)
  1. MABTHERA [Suspect]
     Active Substance: RITUXIMAB
     Indication: MULTIPLE SCLEROSIS
     Route: 042
     Dates: start: 20181018, end: 20181201

REACTIONS (2)
  - Serum sickness [Recovered/Resolved]
  - Drug specific antibody [Recovered/Resolved]

NARRATIVE: CASE EVENT DATE: 20181018
